FAERS Safety Report 8963119 (Version 1)
Quarter: 2012Q4

REPORT INFORMATION
  Report Type: 
  Country: US (occurrence: US)
  Receive Date: 20121214
  Receipt Date: 20121214
  Transmission Date: 20130627
  Serious: Yes (Hospitalization)
  Sender: FDA-Public Use
  Company Number: US-ELI_LILLY_AND_COMPANY-US201212002303

PATIENT
  Sex: Female

DRUGS (2)
  1. HUMULIN REGULAR [Suspect]
     Indication: DIABETES MELLITUS
     Dosage: UNK, prn
  2. HUMULIN REGULAR [Suspect]
     Dosage: UNK, prn

REACTIONS (4)
  - Gastrointestinal disorder [Unknown]
  - Visual impairment [Not Recovered/Not Resolved]
  - Blood glucose increased [Not Recovered/Not Resolved]
  - Drug ineffective [Not Recovered/Not Resolved]
